FAERS Safety Report 5499837-X (Version None)
Quarter: 2007Q4

REPORT INFORMATION
  Report Type: 
  Country: None (occurrence: None)
  Receive Date: 20071026
  Receipt Date: 20071015
  Transmission Date: 20080405
  Serious: Yes (Death)
  Sender: FDA-Public Use
  Company Number: SE-GENENTECH-250011

PATIENT
  Age: 61 Year
  Sex: Male

DRUGS (3)
  1. BEVACIZUMAB [Suspect]
     Indication: COLON CANCER METASTATIC
     Dosage: 622 MG, Q3W
     Route: 042
     Dates: start: 20041213
  2. MEDICATION (UNK INGREDIENT) [Concomitant]
     Indication: DRUG USE FOR UNKNOWN INDICATION
  3. TINZAPARIN [Concomitant]
     Indication: THROMBOSIS
     Dosage: 14000 UNK, QD

REACTIONS (1)
  - DEATH [None]
